FAERS Safety Report 8555475-3 (Version None)
Quarter: 2012Q3

REPORT INFORMATION
  Report Type: 
  Country: None (occurrence: None)
  Receive Date: 20120731
  Receipt Date: 20110819
  Transmission Date: 20120928
  Serious: No
  Sender: FDA-Public Use
  Company Number: US-ASTRAZENECA-2011SE05113

PATIENT
  Age: 21 Year
  Sex: Female
  Weight: 81.6 kg

DRUGS (4)
  1. SEROQUEL [Suspect]
     Indication: BIPOLAR DISORDER
     Route: 048
     Dates: start: 20080101
  2. SEROQUEL [Suspect]
     Route: 048
     Dates: start: 20100901
  3. SEROQUEL [Suspect]
     Route: 048
  4. SEROQUEL [Suspect]
     Route: 048
     Dates: start: 20100901, end: 20110101

REACTIONS (8)
  - DISTURBANCE IN ATTENTION [None]
  - HYPERSOMNIA [None]
  - IMPAIRED WORK ABILITY [None]
  - DRUG INEFFECTIVE [None]
  - MOBILITY DECREASED [None]
  - FRUSTRATION [None]
  - FATIGUE [None]
  - SOMNOLENCE [None]
